FAERS Safety Report 11881206 (Version 1)
Quarter: 2015Q4

REPORT INFORMATION
  Report Type: Spontaneous
  Country: US (occurrence: US)
  Receive Date: 20151231
  Receipt Date: 20151231
  Transmission Date: 20160305
  Serious: Yes (Other)
  Sender: FDA-Public Use
  Company Number: US-009507513-1512USA012200

PATIENT
  Age: 7 Year
  Sex: Male

DRUGS (7)
  1. INTRON A [Suspect]
     Active Substance: INTERFERON ALFA-2B
     Indication: PRODUCT USE ISSUE
     Dosage: DAILY
  2. INTRON A [Suspect]
     Active Substance: INTERFERON ALFA-2B
     Dosage: DAILY
  3. INTRON A [Suspect]
     Active Substance: INTERFERON ALFA-2B
     Dosage: DAILY, DOSE DECREASED
  4. GLYCOPYRROLATE. [Concomitant]
     Active Substance: GLYCOPYRROLATE
  5. IPRATROPIUM BROMIDE. [Concomitant]
     Active Substance: IPRATROPIUM BROMIDE
  6. ALBUTEROL SULFATE. [Concomitant]
     Active Substance: ALBUTEROL SULFATE
  7. PULMICORT TURBUHALER [Concomitant]
     Active Substance: BUDESONIDE

REACTIONS (12)
  - Liver function test abnormal [Unknown]
  - Hepatotoxicity [Unknown]
  - Pruritus generalised [Unknown]
  - Seizure [Unknown]
  - Growth retardation [Unknown]
  - Fatigue [Unknown]
  - Influenza like illness [Unknown]
  - Leukopenia [Unknown]
  - Alopecia [Unknown]
  - Thrombocytopenia [Unknown]
  - Rash [Unknown]
  - Pyrexia [Unknown]
